FAERS Safety Report 15323637 (Version 1)
Quarter: 2018Q3

REPORT INFORMATION
  Report Type: Spontaneous
  Country: DE (occurrence: DE)
  Receive Date: 20180827
  Receipt Date: 20180827
  Transmission Date: 20181010
  Serious: Yes (Congenital Anomaly)
  Sender: FDA-Public Use
  Company Number: PHHY2018DE081789

PATIENT
  Sex: Male
  Weight: .35 kg

DRUGS (9)
  1. PANTOPRAZOL [Suspect]
     Active Substance: PANTOPRAZOLE SODIUM
     Indication: FOETAL EXPOSURE DURING PREGNANCY
     Dosage: MATERNAL DOSE: 40 MG/DL, QD (0 ? 13.5 GESTATIONAL WEEK)
     Route: 064
  2. DORZOLAMIDE [Concomitant]
     Active Substance: DORZOLAMIDE
     Indication: FOETAL EXPOSURE DURING PREGNANCY
     Dosage: MATERNAL DOSE: UNK (18.1 ? 20.6 GESTATIONAL WEEK)
     Route: 064
  3. CERGEM [Concomitant]
     Active Substance: GEMEPROST
     Indication: FOETAL EXPOSURE DURING PREGNANCY
     Dosage: MATERNAL DOSE: UNK (20.4 ? 20.5 GESTATIONAL WEEK)
     Route: 064
  4. CANDESARTAN CILEXETIL. [Suspect]
     Active Substance: CANDESARTAN CILEXETIL
     Indication: FOETAL EXPOSURE DURING PREGNANCY
     Dosage: MATERNAL DOSE: 32 MG/DL, QD (0 ? 9.5 GESTATIONAL WEEK)
     Route: 064
  5. MIFEGYNE [Concomitant]
     Active Substance: MIFEPRISTONE
     Indication: FOETAL EXPOSURE DURING PREGNANCY
     Dosage: MATERNAL DOSE: UNK (20.4 ? 20.5 GESTATIONAL WEEK)
     Route: 064
  6. NEPRESOL (DIHYDRALAZINE SULFATE) [Suspect]
     Active Substance: DIHYDRALAZINE SULFATE
     Indication: FOETAL EXPOSURE DURING PREGNANCY
     Dosage: MATERNAL DOSE: 50 MG/DL, QD (0 ? 20.6 GESTATIONAL WEEK)
     Route: 064
     Dates: start: 20171209, end: 20180504
  7. LAMOTRIGINE. [Suspect]
     Active Substance: LAMOTRIGINE
     Indication: FOETAL EXPOSURE DURING PREGNANCY
     Dosage: MATERNAL DOSE: 100 MG/D]/ 50 TO 100 MG/D (0 ? 20.6 GESTATIONAL WEEK)
     Route: 064
  8. TORASEMID [Concomitant]
     Active Substance: TORSEMIDE
     Indication: HYPERTENSION
     Dosage: MATERNAL DOSE: UNK (0 ? 5.2 GESTATIONAL WEEK)
     Route: 064
  9. METOPROLOL SUCCINATE. [Suspect]
     Active Substance: METOPROLOL SUCCINATE
     Indication: FOETAL EXPOSURE DURING PREGNANCY
     Dosage: MATERNAL DOSE: 190  MG/D/ INITIA 2 X 95MG/D, THEN DOSAGE DECREASE TO 2 X 47.5MG/D (0 ? 20.6 GESTA)
     Route: 064

REACTIONS (7)
  - Pulmonary hypoplasia [Not Recovered/Not Resolved]
  - Joint contracture [Not Recovered/Not Resolved]
  - Congenital vas deferens absence [Not Recovered/Not Resolved]
  - Maternal drugs affecting foetus [None]
  - Single umbilical artery [Not Recovered/Not Resolved]
  - Potter^s syndrome [Not Recovered/Not Resolved]
  - Congenital muscle absence [Not Recovered/Not Resolved]
